FAERS Safety Report 9708452 (Version 2)
Quarter: 2013Q4

REPORT INFORMATION
  Report Type: Spontaneous
  Country: US (occurrence: None)
  Receive Date: 20131121
  Receipt Date: 20131127
  Transmission Date: 20140711
  Serious: Yes (Other)
  Sender: FDA-Public Use
  Company Number: AUR-APL-2013-09617

PATIENT
  Age: 63 Year
  Sex: Male
  Weight: 109 kg

DRUGS (8)
  1. HYDROCHLOROTHIAZIDE [Suspect]
     Indication: HYPERTENSION
     Dosage: 25 MG (25 MG, 1 IN 1 D)
  2. VENLAFAXINE [Suspect]
     Indication: DEPRESSION
     Dosage: ANXIETY
  3. NORVASC [Suspect]
     Indication: HYPERTENSION
     Dosage: 5 MG (5 MG, 1 IN 1 D)
     Dates: start: 2005
  4. ALTACE [Suspect]
     Dosage: 10 MG (10 MG, 1 IN 1 D)
  5. EFFEXOR XR [Suspect]
     Dosage: 225 MG (ONE CAPSULE OF 150 MG AND ONE CAPSULE OF 75 MG) ONCE A DAY
     Dates: start: 1995, end: 2013
  6. AVODART (DUTASTERIDE) CAPSULES [Concomitant]
  7. SIMVASTATIN (SIMVASTATIN) [Concomitant]
  8. NEXIUM (ESOMEPRAZOLE MAGNESIUM) [Concomitant]

REACTIONS (7)
  - Anxiety [None]
  - Mood altered [None]
  - Suicidal ideation [None]
  - Physical abuse [None]
  - Anger [None]
  - Drug ineffective [None]
  - Therapy cessation [None]
